FAERS Safety Report 6366752-9 (Version None)
Quarter: 2009Q4

REPORT INFORMATION
  Report Type: 
  Country: None (occurrence: None)
  Receive Date: 20090915
  Receipt Date: 20090907
  Transmission Date: 20100525
  Serious: Yes (Other)
  Sender: FDA-Public Use
  Company Number: 2009AL005915

PATIENT
  Age: 38 Year
  Sex: Female

DRUGS (1)
  1. FEVERALL [Suspect]
     Dosage: 500 MG; PO
     Route: 048

REACTIONS (1)
  - DYSPNOEA [None]
